FAERS Safety Report 4397807-6 (Version None)
Quarter: 2004Q2

REPORT INFORMATION
  Report Type: 
  Country: None (occurrence: None)
  Receive Date: 20040621
  Receipt Date: 20040211
  Transmission Date: 20050107
  Serious: Yes (Hospitalization, Other)
  Sender: FDA-Public Use
  Company Number: USA-2004-0013065

PATIENT
  Age: 30 Year
  Sex: Male

DRUGS (2)
  1. OXYCONTIN [Suspect]
     Indication: PAIN
     Dosage: 40 MG, Q12H, ORAL
     Route: 048
  2. XANAX XR [Suspect]
     Indication: ANXIETY
     Dosage: 6 ,G

REACTIONS (1)
  - GRAND MAL CONVULSION [None]
